FAERS Safety Report 8167683-4 (Version None)
Quarter: 2012Q1

REPORT INFORMATION
  Report Type: 
  Country: None (occurrence: None)
  Receive Date: 20120227
  Receipt Date: 20120215
  Transmission Date: 20120608
  Serious: Yes (Other)
  Sender: FDA-Public Use
  Company Number: IT-BRISTOL-MYERS SQUIBB COMPANY-16404931

PATIENT
  Age: 70 Year
  Sex: Female

DRUGS (4)
  1. CLONAZEPAM [Concomitant]
     Indication: EPILEPSY
     Dosage: 1 DF : 2.5 MG/ML
  2. LEVOTHYROXINE SODIUM [Concomitant]
     Indication: HYPOTHYROIDISM
  3. COUMADIN [Suspect]
     Indication: ATRIAL FIBRILLATION
     Dates: start: 20110101, end: 20120128
  4. AMIODARONE HCL [Concomitant]
     Indication: ATRIAL FIBRILLATION

REACTIONS (2)
  - PNEUMONIA LEGIONELLA [None]
  - HAEMATURIA [None]
